FAERS Safety Report 9938111 (Version 2)
Quarter: 2014Q2

REPORT INFORMATION
  Report Type: Spontaneous
  Country: US (occurrence: US)
  Receive Date: 20140303
  Receipt Date: 20140425
  Transmission Date: 20141212
  Serious: Yes (Death)
  Sender: FDA-Public Use
  Company Number: US-INCYTE CORPORATION-2014IN000527

PATIENT
  Sex: Male
  Weight: 55.78 kg

DRUGS (3)
  1. JAKAFI [Suspect]
     Indication: PANCREATIC CARCINOMA METASTATIC
     Dosage: 15 MG, BID
     Route: 048
     Dates: start: 20131013
  2. XELODA [Suspect]
     Indication: PANCREATIC CARCINOMA METASTATIC
     Dosage: 500 MG, BID
     Route: 048
     Dates: start: 201310
  3. TARCEVA [Concomitant]
     Dosage: NOT SPECIFIED
     Dates: start: 20130211

REACTIONS (2)
  - Disease progression [Fatal]
  - Off label use [Unknown]
